FAERS Safety Report 9471326 (Version 4)
Quarter: 2014Q1

REPORT INFORMATION
  Report Type: Spontaneous
  Country: JP (occurrence: JP)
  Receive Date: 20130822
  Receipt Date: 20140108
  Transmission Date: 20141002
  Serious: Yes (Death, Hospitalization)
  Sender: FDA-Public Use
  Company Number: JP-UCBSA-095880

PATIENT
  Age: 54 Year
  Sex: Male
  Weight: 62.3 kg

DRUGS (15)
  1. E KEPPRA [Suspect]
     Indication: EPILEPSY
     Route: 048
     Dates: start: 20130701, end: 20130714
  2. METHOTREXATE [Interacting]
     Indication: ACUTE MYELOMONOCYTIC LEUKAEMIA
     Dosage: 15 MG DAILY
     Route: 024
     Dates: start: 20130630, end: 20130630
  3. METHOTREXATE [Interacting]
     Indication: ACUTE MYELOMONOCYTIC LEUKAEMIA
     Dosage: 15 MG DAILY
     Route: 024
     Dates: start: 20130701, end: 20130701
  4. METHOTREXATE [Interacting]
     Indication: ACUTE MYELOMONOCYTIC LEUKAEMIA
     Dosage: 15 MG DAILY
     Route: 024
     Dates: start: 20130704, end: 20130704
  5. CYLOCIDE [Concomitant]
     Dosage: 40 MG DAILY
     Route: 024
     Dates: start: 20130630, end: 20130630
  6. CYLOCIDE [Concomitant]
     Dosage: 40 MG DAILY
     Route: 024
     Dates: start: 20130701, end: 20130701
  7. CYLOCIDE [Concomitant]
     Dosage: 40 MG DAILY
     Route: 024
     Dates: start: 20130704, end: 20130704
  8. PREDONINE [Concomitant]
     Dosage: 10 MG DAILY
     Route: 024
     Dates: start: 20130630, end: 20130630
  9. PREDONINE [Concomitant]
     Dosage: 10 MG DAILY
     Route: 024
     Dates: start: 20130701, end: 20130701
  10. PREDONINE [Concomitant]
     Dosage: 10 MG DAILY
     Route: 024
     Dates: start: 20130704, end: 20130704
  11. NEXIUM [Concomitant]
     Dosage: 20 MG DAILY
     Route: 048
     Dates: start: 20130612, end: 20130714
  12. VFEND [Concomitant]
     Dosage: 400 MG DAILY
     Route: 048
     Dates: start: 20130609, end: 20130714
  13. BAKTAR [Concomitant]
     Dosage: 2 DF DAILY
     Route: 048
     Dates: start: 20130503, end: 20130714
  14. URSO [Concomitant]
     Dosage: 200 MG DAILY
     Route: 048
     Dates: start: 20130705, end: 20130714
  15. GLYCEOL [Concomitant]
     Dosage: 600 ML DAILY
     Route: 042
     Dates: start: 20130628, end: 20130712

REACTIONS (4)
  - Acute myelomonocytic leukaemia [Fatal]
  - Sepsis [Not Recovered/Not Resolved]
  - Oral disorder [Not Recovered/Not Resolved]
  - Drug interaction [Unknown]
